FAERS Safety Report 4527527-6 (Version None)
Quarter: 2004Q4

REPORT INFORMATION
  Report Type: 
  Country: None (occurrence: None)
  Receive Date: 20041130
  Receipt Date: 20040923
  Transmission Date: 20050328
  Serious: No
  Sender: FDA-Public Use
  Company Number: WAES 0409USA01994

PATIENT
  Sex: Male
  Weight: 79.3795 kg

DRUGS (10)
  1. ZETIA [Suspect]
     Indication: LIPIDS ABNORMAL
     Dosage: 10 MG/PM/PO
     Route: 048
     Dates: start: 20040701, end: 20040801
  2. CHLOR-TRIMETON [Concomitant]
  3. DIOVAN [Concomitant]
  4. FLONASE [Concomitant]
  5. SUDAFED S.A. [Concomitant]
  6. TYLENOL (CAPLET) [Concomitant]
  7. CALCIUM (UNSPCIFIED) (+) VITMIN [Concomitant]
  8. LABETALOL HYDROCHLORIDE [Concomitant]
  9. NIACIN [Concomitant]
  10. VITAMIN E [Concomitant]

REACTIONS (4)
  - FATIGUE [None]
  - HYPERLIPIDAEMIA [None]
  - MUSCULAR WEAKNESS [None]
  - MYALGIA [None]
